FAERS Safety Report 24161210 (Version 1)
Quarter: 2024Q3

REPORT INFORMATION
  Report Type: Report from Study
  Country: FR (occurrence: None)
  Receive Date: 20240801
  Receipt Date: 20240801
  Transmission Date: 20241017
  Serious: Yes (Life-Threatening, Other)
  Sender: ASTRAZENECA
  Company Number: 2022A170416

PATIENT
  Age: 1024 Month
  Sex: Female
  Weight: 71 kg

DRUGS (1)
  1. OSIMERTINIB [Suspect]
     Active Substance: OSIMERTINIB
     Indication: Non-small cell lung cancer
     Route: 048
     Dates: start: 20220330, end: 20220426

REACTIONS (2)
  - Thrombocytopenia [Not Recovered/Not Resolved]
  - Ischaemic stroke [Recovered/Resolved]

NARRATIVE: CASE EVENT DATE: 20220426
